FAERS Safety Report 19727926 (Version 1)
Quarter: 2021Q3

REPORT INFORMATION
  Report Type: Spontaneous
  Country: DE (occurrence: DE)
  Receive Date: 20210820
  Receipt Date: 20210820
  Transmission Date: 20211014
  Serious: Yes (Hospitalization, Congenital Anomaly, Other)
  Sender: FDA-Public Use
  Company Number: DE-AUROBINDO-AUR-APL-2013-04597

PATIENT
  Sex: Male
  Weight: 1.77 kg

DRUGS (4)
  1. SERTRALINE [Suspect]
     Active Substance: SERTRALINE HYDROCHLORIDE
     Dosage: 50 MG,DAILY,
     Route: 064
  2. SERTRALINE [Suspect]
     Active Substance: SERTRALINE HYDROCHLORIDE
     Dosage: 25 MG,DAILY,
     Route: 064
     Dates: end: 20091007
  3. SERTRALINE [Suspect]
     Active Substance: SERTRALINE HYDROCHLORIDE
     Indication: DEPRESSION
     Dosage: 50 MG,DAILY,
     Route: 064
     Dates: start: 20090125
  4. FEMIBION [Concomitant]
     Indication: PROPHYLAXIS OF NEURAL TUBE DEFECT
     Dosage: 0.4 MILLIGRAM, DAILY
     Route: 064

REACTIONS (9)
  - Naevus flammeus [Unknown]
  - Growth failure [Recovered/Resolved]
  - Small for dates baby [Recovered/Resolved]
  - Breech presentation [Recovered/Resolved]
  - Selective eating disorder [Recovered/Resolved]
  - Exposure during pregnancy [Unknown]
  - Foetal growth restriction [Recovered/Resolved]
  - Premature delivery [Recovered/Resolved]
  - Haemangioma congenital [Unknown]

NARRATIVE: CASE EVENT DATE: 20091007
